FAERS Safety Report 23824729 (Version 2)
Quarter: 2024Q2

REPORT INFORMATION
  Report Type: Other
  Country: US (occurrence: None)
  Receive Date: 20240507
  Receipt Date: 20240510
  Transmission Date: 20240716
  Serious: Yes (Hospitalization)
  Sender: FDA-Public Use
  Company Number: US-ROCHE-3552644

PATIENT
  Age: 51 Year
  Sex: Male

DRUGS (4)
  1. OCREVUS [Suspect]
     Active Substance: OCRELIZUMAB
     Indication: Relapsing multiple sclerosis
     Dosage: DATES OF TREATMENT : 05/APR/2022, 28/SEP/2021, 12/SEP/2018
     Route: 042
     Dates: end: 20240322
  2. BACLOFEN [Concomitant]
     Active Substance: BACLOFEN
  3. AMANTADINE [Concomitant]
     Active Substance: AMANTADINE
  4. AMPYRA [Concomitant]
     Active Substance: DALFAMPRIDINE

REACTIONS (1)
  - Infection [Unknown]

NARRATIVE: CASE EVENT DATE: 20240301
